FAERS Safety Report 10257276 (Version 1)
Quarter: 2014Q2

REPORT INFORMATION
  Report Type: Other
  Country: US (occurrence: US)
  Receive Date: 20140625
  Receipt Date: 20140625
  Transmission Date: 20141212
  Serious: Yes (Other)
  Sender: FDA-Public Use
  Company Number: US-ACORDA-ACO_104052_2014

PATIENT
  Age: 68 Year
  Sex: Female
  Weight: 54.42 kg

DRUGS (3)
  1. AMPYRA [Suspect]
     Indication: MULTIPLE SCLEROSIS
     Dosage: 10 MG/ONE PILL
     Route: 065
     Dates: start: 201404, end: 2014
  2. AMPYRA [Suspect]
     Dosage: 1/2 PILL TWICE A DAY
  3. VITAMINS [Concomitant]
     Indication: PRODUCT USED FOR UNKNOWN INDICATION
     Dosage: UNK
     Route: 065

REACTIONS (11)
  - Convulsion [Recovered/Resolved]
  - Feeling abnormal [Recovered/Resolved]
  - Head discomfort [Recovered/Resolved]
  - Hypersomnia [Recovered/Resolved]
  - Dyspnoea [Recovered/Resolved]
  - Chest discomfort [Recovered/Resolved]
  - Abdominal discomfort [Recovered/Resolved]
  - Wrong technique in drug usage process [Recovered/Resolved]
  - Gait disturbance [Recovered/Resolved]
  - Constipation [Recovered/Resolved]
  - Incorrect dose administered [Recovered/Resolved]
